FAERS Safety Report 5958115-2 (Version None)
Quarter: 2008Q4

REPORT INFORMATION
  Report Type: 
  Country: None (occurrence: None)
  Receive Date: 20081117
  Receipt Date: 20081117
  Transmission Date: 20090506
  Serious: Yes (Life-Threatening)
  Sender: FDA-Public Use
  Company Number: None

PATIENT
  Age: 35 Year
  Sex: Female
  Weight: 65.7716 kg

DRUGS (1)
  1. TOPAMAX [Suspect]
     Indication: MIGRAINE
     Dosage: 200MG 1 X DAY PO
     Route: 048
     Dates: start: 20080101, end: 20080829

REACTIONS (4)
  - ANOREXIA [None]
  - APHASIA [None]
  - DISTURBANCE IN ATTENTION [None]
  - MEMORY IMPAIRMENT [None]
